FAERS Safety Report 9364778 (Version 1)
Quarter: 2013Q2

REPORT INFORMATION
  Report Type: Spontaneous
  Country: DE (occurrence: DE)
  Receive Date: 20130624
  Receipt Date: 20130624
  Transmission Date: 20140414
  Serious: Yes (Death, Hospitalization, Other)
  Sender: FDA-Public Use
  Company Number: DE-BAYER-2013-077466

PATIENT
  Sex: 0

DRUGS (4)
  1. LEPIRUDIN [Suspect]
     Indication: HEPARIN-INDUCED THROMBOCYTOPENIA
     Route: 065
  2. ARGATROBAN [Concomitant]
     Indication: HEPARIN-INDUCED THROMBOCYTOPENIA
  3. DANAPAROID [Concomitant]
     Indication: HEPARIN-INDUCED THROMBOCYTOPENIA
  4. FONDAPARINUX [Concomitant]
     Indication: HEPARIN-INDUCED THROMBOCYTOPENIA

REACTIONS (5)
  - Death [Fatal]
  - Thrombosis [Unknown]
  - Amputation [Unknown]
  - Haemorrhage [Unknown]
  - Skin necrosis [Unknown]
